FAERS Safety Report 9278099 (Version 1)
Quarter: 2013Q2

REPORT INFORMATION
  Report Type: Spontaneous
  Country: US (occurrence: None)
  Receive Date: 20130503
  Receipt Date: 20130503
  Transmission Date: 20140414
  Serious: Yes (Hospitalization)
  Sender: FDA-Public Use
  Company Number: None

PATIENT
  Sex: Female

DRUGS (3)
  1. MEANINGFUL BEAUTY EYE LIFTING CREAM [Suspect]
     Indication: THERAPEUTIC SKIN CARE TOPICAL
     Dosage: DAILY, SKIN CARE?1 DAY
  2. MEANINGFUL BEAUTY DAY CREAM SPF 20 [Suspect]
     Indication: THERAPEUTIC SKIN CARE TOPICAL
     Dosage: DAILY, SKIN CARE?1 DAY
  3. MEANINGFUL BEAUTY ANTI-AGING CREAM [Suspect]
     Dosage: DAILY, SKIN CARE?1 DAY

REACTIONS (2)
  - Urticaria [None]
  - Eye swelling [None]
